FAERS Safety Report 25082867 (Version 1)
Quarter: 2025Q1

REPORT INFORMATION
  Report Type: Spontaneous
  Country: US (occurrence: US)
  Receive Date: 20250317
  Receipt Date: 20250317
  Transmission Date: 20250409
  Serious: Yes (Other)
  Sender: HIKMA
  Company Number: US-HIKMA PHARMACEUTICALS-US-H14001-25-02155

PATIENT
  Age: 36 Year
  Sex: Male

DRUGS (2)
  1. KETAMINE [Suspect]
     Active Substance: KETAMINE
     Indication: Status epilepticus
     Route: 040
  2. KETAMINE [Suspect]
     Active Substance: KETAMINE
     Route: 041

REACTIONS (4)
  - Anxiety [Recovered/Resolved]
  - Mood altered [Recovered/Resolved]
  - Crying [Recovered/Resolved]
  - Hallucinations, mixed [Recovered/Resolved]
